FAERS Safety Report 19661336 (Version 1)
Quarter: 2021Q3

REPORT INFORMATION
  Report Type: Report from Study
  Country: FR (occurrence: FR)
  Receive Date: 20210805
  Receipt Date: 20210805
  Transmission Date: 20211014
  Serious: Yes (Death)
  Sender: FDA-Public Use
  Company Number: FR-ONCOPEPPR-00848

PATIENT
  Age: 76 Year
  Sex: Female

DRUGS (1)
  1. MELPHALAN FLUFENAMIDE [Suspect]
     Active Substance: MELPHALAN FLUFENAMIDE
     Indication: PLASMA CELL MYELOMA
     Dates: start: 20210520, end: 20210520

REACTIONS (1)
  - Death [Fatal]

NARRATIVE: CASE EVENT DATE: 20210619
